FAERS Safety Report 13371366 (Version 1)
Quarter: 2017Q1

REPORT INFORMATION
  Report Type: Spontaneous
  Country: IT (occurrence: IT)
  Receive Date: 20170324
  Receipt Date: 20170324
  Transmission Date: 20170429
  Serious: Yes (Hospitalization)
  Sender: FDA-Public Use
  Company Number: IT-GLAXOSMITHKLINE-IT2017GSK040097

PATIENT
  Age: 53 Year
  Sex: Male

DRUGS (3)
  1. INDOXEN [Suspect]
     Active Substance: INDOMETHACIN
     Indication: HEADACHE
     Dosage: 200 MG, QD
     Route: 054
     Dates: start: 20160601, end: 20170306
  2. TRIATEC [Concomitant]
     Active Substance: RAMIPRIL
  3. IMIGRAN [Suspect]
     Active Substance: SUMATRIPTAN SUCCINATE
     Indication: HEADACHE
     Dosage: 50 MG, QD
     Route: 048
     Dates: start: 20140901, end: 20170306

REACTIONS (4)
  - Drug abuse [Recovering/Resolving]
  - Headache [Recovering/Resolving]
  - Off label use [Recovering/Resolving]
  - Hypertension [Recovering/Resolving]

NARRATIVE: CASE EVENT DATE: 20170306
